FAERS Safety Report 18080406 (Version 1)
Quarter: 2020Q3

REPORT INFORMATION
  Report Type: Spontaneous
  Country: US (occurrence: US)
  Receive Date: 20200728
  Receipt Date: 20200728
  Transmission Date: 20201103
  Serious: Yes (Life-Threatening, Other)
  Sender: FDA-Public Use
  Company Number: None

PATIENT
  Age: 18 Year
  Sex: Female
  Weight: 63 kg

DRUGS (1)
  1. CHLORHEXIDINE [Suspect]
     Active Substance: CHLORHEXIDINE
     Indication: INFECTION PROPHYLAXIS

REACTIONS (5)
  - Skin irritation [None]
  - Urticaria [None]
  - Gingival swelling [None]
  - Pharyngeal swelling [None]
  - Impaired healing [None]

NARRATIVE: CASE EVENT DATE: 20160216
